FAERS Safety Report 4569505-7 (Version None)
Quarter: 2005Q1

REPORT INFORMATION
  Report Type: 
  Country: None (occurrence: None)
  Receive Date: 20050203
  Receipt Date: 20050120
  Transmission Date: 20050727
  Serious: Yes (Life-Threatening, Hospitalization)
  Sender: FDA-Public Use
  Company Number: NL-JNJFOC-20050200057

PATIENT
  Sex: Male

DRUGS (4)
  1. BEPRIDIL [Suspect]
     Indication: ATRIAL FIBRILLATION
     Route: 049
  2. FAMOTIDINE [Concomitant]
     Indication: GASTRIC ULCER
     Route: 049
  3. DIFENIDOL HYDROCHLORIDE [Concomitant]
     Indication: DIZZINESS
     Route: 049
  4. DOMPERIDONE [Concomitant]
     Indication: GASTRIC ULCER
     Route: 049

REACTIONS (5)
  - ELECTROCARDIOGRAM QT PROLONGED [None]
  - HYPOKALAEMIA [None]
  - LOSS OF CONSCIOUSNESS [None]
  - TORSADE DE POINTES [None]
  - VENTRICULAR FIBRILLATION [None]
